FAERS Safety Report 9513622 (Version 5)
Quarter: 2014Q1

REPORT INFORMATION
  Report Type: Report from Study
  Country: DE (occurrence: DE)
  Receive Date: 20130910
  Receipt Date: 20140110
  Transmission Date: 20141002
  Serious: Yes (Hospitalization)
  Sender: FDA-Public Use
  Company Number: DE-GLAXOSMITHKLINE-B0889342C

PATIENT
  Age: 58 Year
  Sex: Female
  Weight: 63 kg

DRUGS (3)
  1. VOTRIENT [Suspect]
     Indication: SARCOMA
     Dosage: 800MG PER DAY
     Route: 048
     Dates: start: 20130125, end: 20130814
  2. GEMZAR [Suspect]
     Indication: SARCOMA
     Dosage: 1000MGM2 CYCLIC
     Route: 042
     Dates: start: 20130125, end: 20130814
  3. OLMESARTAN [Concomitant]
     Indication: HYPERTENSION
     Dosage: 40MG PER DAY
     Dates: start: 20101001

REACTIONS (2)
  - Fatigue [Recovered/Resolved]
  - Renal failure acute [Recovering/Resolving]
